FAERS Safety Report 16141643 (Version 7)
Quarter: 2019Q4

REPORT INFORMATION
  Report Type: Report from Study
  Country: US (occurrence: US)
  Receive Date: 20190401
  Receipt Date: 20191227
  Transmission Date: 20200122
  Serious: Yes (Other)
  Sender: FDA-Public Use
  Company Number: US-CLOVIS ONCOLOGY-CLO-2019-000458

PATIENT

DRUGS (3)
  1. RUBRACA [Suspect]
     Active Substance: RUCAPARIB CAMSYLATE
     Indication: OVARIAN CANCER
     Dosage: 600 MG, BID
     Route: 048
     Dates: start: 20190302, end: 20190530
  2. RUBRACA [Suspect]
     Active Substance: RUCAPARIB CAMSYLATE
     Indication: ILL-DEFINED DISORDER
     Dosage: 300 MG, BID
     Route: 048
     Dates: start: 20190528
  3. RUBRACA [Suspect]
     Active Substance: RUCAPARIB CAMSYLATE
     Dosage: 500 MG, BID
     Route: 048
     Dates: start: 20190613

REACTIONS (15)
  - Neuropathy peripheral [Not Recovered/Not Resolved]
  - Weight decreased [Recovering/Resolving]
  - Dysgeusia [Recovered/Resolved]
  - Anaemia [Recovering/Resolving]
  - Flatulence [Recovering/Resolving]
  - Leukopenia [Recovering/Resolving]
  - Constipation [Not Recovered/Not Resolved]
  - Fatigue [Not Recovered/Not Resolved]
  - Diarrhoea [Not Recovered/Not Resolved]
  - Vomiting [Recovering/Resolving]
  - Anxiety [Unknown]
  - Pyrexia [Recovering/Resolving]
  - Nausea [Recovering/Resolving]
  - Taste disorder [Unknown]
  - Pneumonia [Recovered/Resolved]

NARRATIVE: CASE EVENT DATE: 2019
